FAERS Safety Report 24051868 (Version 4)
Quarter: 2024Q3

REPORT INFORMATION
  Report Type: Spontaneous
  Country: AU (occurrence: None)
  Receive Date: 20240704
  Receipt Date: 20240807
  Transmission Date: 20241017
  Serious: Yes (Life-Threatening, Hospitalization, Other)
  Sender: ASTRAZENECA
  Company Number: 2024A151103

PATIENT
  Age: 56 Year
  Sex: Female

DRUGS (13)
  1. ROSUVASTATIN CALCIUM [Suspect]
     Active Substance: ROSUVASTATIN CALCIUM
     Route: 048
  2. ESOMEPRAZOLE [Suspect]
     Active Substance: ESOMEPRAZOLE
     Route: 048
  3. ANASTROZOLE [Suspect]
     Active Substance: ANASTROZOLE
     Route: 048
  4. TOZINAMERAN [Suspect]
     Active Substance: TOZINAMERAN
  5. NOVORAPID [Suspect]
     Active Substance: INSULIN ASPART
  6. INSULIN GLARGINE [Suspect]
     Active Substance: INSULIN GLARGINE
  7. PHENERGAN [Suspect]
     Active Substance: PROMETHAZINE HYDROCHLORIDE
  8. ALBUTEROL SULFATE [Suspect]
     Active Substance: ALBUTEROL SULFATE
  9. APIXABAN [Suspect]
     Active Substance: APIXABAN
  10. FAMOTIDINE [Suspect]
     Active Substance: FAMOTIDINE
  11. LORATADINE [Suspect]
     Active Substance: LORATADINE
  12. METFORMIN HYDROCHLORIDE [Suspect]
     Active Substance: METFORMIN HYDROCHLORIDE
  13. MONTELUKAST SODIUM [Suspect]
     Active Substance: MONTELUKAST SODIUM

REACTIONS (10)
  - Anaphylactic reaction [Unknown]
  - Pneumonia haemophilus [Unknown]
  - Respiratory failure [Recovering/Resolving]
  - Pneumonia [Unknown]
  - Upper respiratory tract infection [Unknown]
  - COVID-19 [Unknown]
  - Human rhinovirus test positive [Unknown]
  - Mouth haemorrhage [Unknown]
  - Respiratory syncytial virus test positive [Unknown]
  - Tongue biting [Unknown]

NARRATIVE: CASE EVENT DATE: 20180718
